FAERS Safety Report 9378619 (Version 1)
Quarter: 2013Q3

REPORT INFORMATION
  Report Type: Spontaneous
  Country: AU (occurrence: AU)
  Receive Date: 20130702
  Receipt Date: 20130702
  Transmission Date: 20140515
  Serious: Yes (Death, Hospitalization)
  Sender: FDA-Public Use
  Company Number: AU-AMGEN-AUSSP2013046421

PATIENT
  Age: 56 Year
  Sex: Male

DRUGS (31)
  1. NEUPOGEN [Suspect]
     Indication: PRODUCT USED FOR UNKNOWN INDICATION
     Dosage: 300 MG, DAILY
     Route: 058
     Dates: start: 20130312
  2. ACICLOVIR [Suspect]
     Dosage: 350 MG, DAILY
     Route: 042
     Dates: start: 20130313
  3. AMPHOTERICIN [Suspect]
     Dosage: 40 MG, DAILY
     Route: 048
     Dates: start: 20130310
  4. CASPOFUNGIN ACETATE [Suspect]
     Dosage: 70 MG, DAILY
     Dates: start: 20130312
  5. ENOXAPARIN [Suspect]
     Dosage: 20 MG, DAILY
     Route: 058
     Dates: start: 20130309
  6. GANCICLOVIR [Suspect]
     Dosage: 50 MG, DAILY
     Route: 042
     Dates: start: 20130306
  7. MAGMIN [Suspect]
     Dosage: 2, 2 TIMES
     Route: 048
     Dates: start: 20130306
  8. MEROPENEM [Suspect]
     Dosage: 500 MG, 2 TIMES
     Dates: start: 20130312
  9. ONDANSETRON HYDROCHLORIDE DIHYDRATE [Suspect]
     Dosage: 4 MG, 3 TIMES
     Dates: start: 20130309
  10. PARACETAMOL [Suspect]
     Dosage: UNK UNK, AS NECESSARY
     Route: 048
     Dates: start: 20130307
  11. TAZOCIN [Suspect]
     Dosage: 4.5 G, DAILY
     Route: 042
     Dates: start: 20130311
  12. TRIMETHOPRIM SULFAMETHOXAZOLE [Suspect]
     Dosage: 3 DOSES UNSPECIFIED WEEKLY
     Dates: start: 20130219, end: 20130310
  13. VALGANCICLOVIR [Suspect]
     Dosage: 450 MG, 2 TIMES
     Dates: start: 20130305, end: 20130306
  14. VANCOMYCIN HYDROCHLORIDE [Suspect]
     Dosage: 1 G, DAILY
     Dates: start: 20130312
  15. AMLODIPINE [Concomitant]
     Dosage: 10 MG, UNK
  16. CHLORPHENESIN [Concomitant]
     Dosage: UNK
  17. CHOLECALCIFEROL [Concomitant]
     Dosage: UNK
  18. CIPROXIN                           /00697201/ [Concomitant]
     Dosage: UNK
     Dates: start: 20130312
  19. CYCLOSPORIN [Concomitant]
     Dosage: 300 MG, UNK
  20. FOLIC ACID [Concomitant]
     Dosage: UNK
  21. HYDROCORTISONE [Concomitant]
     Dosage: 50 MG, UNK
     Route: 042
  22. METOCLOPRAMIDE HYDROCHLORIDE [Concomitant]
     Dosage: 10 MG, UNK
  23. MOVICOL                            /01625101/ [Concomitant]
     Dosage: 1 DOSE UNSPECIFIED
  24. MYCOPHENOLATE MOFETIL [Concomitant]
     Dosage: 500 MG, UNK
  25. NOVORAPID [Concomitant]
     Dosage: 24 UNIT, UNK
  26. NYSTATIN [Concomitant]
     Dosage: UNK
     Dates: start: 20130310
  27. OXYNORM [Concomitant]
     Dosage: 5 MG, UNK
  28. PANTOPRAZOLE [Concomitant]
     Dosage: 20 MG, UNK
  29. PREDNISOLONE [Concomitant]
     Dosage: 15 MG, UNK
  30. RANITIDINE [Concomitant]
     Dosage: 150 MG, UNK
  31. URSODEOXYCHOLIC ACID [Concomitant]
     Dosage: 10 MG, UNK

REACTIONS (2)
  - Toxic epidermal necrolysis [Fatal]
  - Otitis externa [None]
